FAERS Safety Report 24764318 (Version 1)
Quarter: 2024Q4

REPORT INFORMATION
  Report Type: Spontaneous
  Country: FR (occurrence: FR)
  Receive Date: 20241223
  Receipt Date: 20241223
  Transmission Date: 20250114
  Serious: Yes (Disabling)
  Sender: ORGANON
  Company Number: None

PATIENT
  Age: 36 Year
  Sex: Female
  Weight: 69 kg

DRUGS (6)
  1. NEXPLANON [Suspect]
     Active Substance: ETONOGESTREL
     Indication: Hormonal contraception
     Dosage: 1 IMPLANT OF 68 MILLIGRAM, ONCE
     Route: 058
     Dates: start: 2000, end: 2009
  2. DESOGESTREL [Suspect]
     Active Substance: DESOGESTREL
     Indication: Hormonal contraception
     Dosage: 109.5 MILLIGRAM, ONCE
     Route: 048
     Dates: start: 2011, end: 2014
  3. CHLORMADINONE ACETATE [Suspect]
     Active Substance: CHLORMADINONE ACETATE
     Indication: Endometriosis
     Dosage: 4820 MILLIGRAM, ONCE
     Route: 048
     Dates: start: 20161223, end: 20180419
  4. DESOGESTREL [Suspect]
     Active Substance: DESOGESTREL
     Indication: Hormonal contraception
     Dosage: 164.55 MILLIGRAM, ONCE
     Route: 048
     Dates: start: 20180929, end: 202410
  5. MIRENA [Suspect]
     Active Substance: LEVONORGESTREL
     Indication: Hormonal contraception
     Dosage: 1 DOSAGE FORM, ONCE (20 MICROGGRAMS/ 24 HOURS)
     Route: 015
     Dates: start: 2014, end: 2016
  6. ESOMEPRAZOLE [Concomitant]
     Active Substance: ESOMEPRAZOLE

REACTIONS (1)
  - Meningioma [Recovered/Resolved with Sequelae]

NARRATIVE: CASE EVENT DATE: 20160101
